FAERS Safety Report 7429035-1 (Version None)
Quarter: 2011Q2

REPORT INFORMATION
  Report Type: 
  Country: None (occurrence: None)
  Receive Date: 20110421
  Receipt Date: 20110301
  Transmission Date: 20111010
  Serious: No
  Sender: FDA-Public Use
  Company Number: US-ROCHE-763084

PATIENT
  Sex: Female

DRUGS (1)
  1. TAMIFLU [Suspect]
     Dosage: PRESCRIBED DOSE:1/2 TEA SPOON TWICE DAILY. RECEIVED DOSE: 1/2 TEASPOON THRICE DAILY
     Route: 048
     Dates: start: 20110108, end: 20110108

REACTIONS (3)
  - MEDICATION ERROR [None]
  - PRODUCT RECONSTITUTION ISSUE [None]
  - VOMITING [None]
